FAERS Safety Report 20359013 (Version 8)
Quarter: 2023Q2

REPORT INFORMATION
  Report Type: Report from Study
  Country: US (occurrence: US)
  Receive Date: 20220120
  Receipt Date: 20230414
  Transmission Date: 20230722
  Serious: No
  Sender: FDA-Public Use
  Company Number: US-TAKEDA-2022TUS002029

PATIENT
  Age: 51 Year
  Sex: Female

DRUGS (61)
  1. TEDUGLUTIDE [Suspect]
     Active Substance: TEDUGLUTIDE
     Indication: Short-bowel syndrome
     Dosage: 3.2 MILLIGRAM, QD
     Route: 042
     Dates: start: 20201027, end: 20201105
  2. TEDUGLUTIDE [Suspect]
     Active Substance: TEDUGLUTIDE
     Indication: Short-bowel syndrome
     Dosage: 3.2 MILLIGRAM, QD
     Route: 042
     Dates: start: 20201027, end: 20201105
  3. TEDUGLUTIDE [Suspect]
     Active Substance: TEDUGLUTIDE
     Indication: Short-bowel syndrome
     Dosage: 3.2 MILLIGRAM, QD
     Route: 042
     Dates: start: 20201027, end: 20201105
  4. TEDUGLUTIDE [Suspect]
     Active Substance: TEDUGLUTIDE
     Indication: Short-bowel syndrome
     Dosage: 3.2 MILLIGRAM, QD
     Route: 042
     Dates: start: 20201027, end: 20201105
  5. TEDUGLUTIDE [Suspect]
     Active Substance: TEDUGLUTIDE
     Dosage: 3.2 MILLIGRAM, 5/WEEK
     Route: 042
     Dates: start: 20201105, end: 20201111
  6. TEDUGLUTIDE [Suspect]
     Active Substance: TEDUGLUTIDE
     Dosage: 3.2 MILLIGRAM, 5/WEEK
     Route: 042
     Dates: start: 20201105, end: 20201111
  7. TEDUGLUTIDE [Suspect]
     Active Substance: TEDUGLUTIDE
     Dosage: 3.2 MILLIGRAM, 5/WEEK
     Route: 042
     Dates: start: 20201105, end: 20201111
  8. TEDUGLUTIDE [Suspect]
     Active Substance: TEDUGLUTIDE
     Dosage: 3.2 MILLIGRAM, 5/WEEK
     Route: 042
     Dates: start: 20201105, end: 20201111
  9. TEDUGLUTIDE [Suspect]
     Active Substance: TEDUGLUTIDE
     Dosage: 3.2 MILLIGRAM, QD
     Route: 042
     Dates: start: 20201111, end: 20210211
  10. TEDUGLUTIDE [Suspect]
     Active Substance: TEDUGLUTIDE
     Dosage: 3.2 MILLIGRAM, QD
     Route: 042
     Dates: start: 20201111, end: 20210211
  11. TEDUGLUTIDE [Suspect]
     Active Substance: TEDUGLUTIDE
     Dosage: 3.2 MILLIGRAM, QD
     Route: 042
     Dates: start: 20201111, end: 20210211
  12. TEDUGLUTIDE [Suspect]
     Active Substance: TEDUGLUTIDE
     Dosage: 3.2 MILLIGRAM, QD
     Route: 042
     Dates: start: 20201111, end: 20210211
  13. TEDUGLUTIDE [Suspect]
     Active Substance: TEDUGLUTIDE
     Dosage: 2.6 MILLIGRAM, QD
     Route: 042
     Dates: start: 20210212, end: 20210824
  14. TEDUGLUTIDE [Suspect]
     Active Substance: TEDUGLUTIDE
     Dosage: 2.6 MILLIGRAM, QD
     Route: 042
     Dates: start: 20210212, end: 20210824
  15. TEDUGLUTIDE [Suspect]
     Active Substance: TEDUGLUTIDE
     Dosage: 2.6 MILLIGRAM, QD
     Route: 042
     Dates: start: 20210212, end: 20210824
  16. TEDUGLUTIDE [Suspect]
     Active Substance: TEDUGLUTIDE
     Dosage: 2.6 MILLIGRAM, QD
     Route: 042
     Dates: start: 20210212, end: 20210824
  17. TEDUGLUTIDE [Suspect]
     Active Substance: TEDUGLUTIDE
     Dosage: 3 MILLIGRAM, QD
     Route: 042
     Dates: start: 20210825
  18. TEDUGLUTIDE [Suspect]
     Active Substance: TEDUGLUTIDE
     Dosage: 3 MILLIGRAM, QD
     Route: 042
     Dates: start: 20210825
  19. TEDUGLUTIDE [Suspect]
     Active Substance: TEDUGLUTIDE
     Dosage: 3 MILLIGRAM, QD
     Route: 042
     Dates: start: 20210825
  20. TEDUGLUTIDE [Suspect]
     Active Substance: TEDUGLUTIDE
     Dosage: 3 MILLIGRAM, QD
     Route: 042
     Dates: start: 20210825
  21. ERGOCALCIFEROL [Concomitant]
     Active Substance: ERGOCALCIFEROL
     Indication: Vitamin D deficiency
     Dosage: 50000 INTERNATIONAL UNIT, TID
     Route: 048
     Dates: start: 20210312
  22. ERGOCALCIFEROL [Concomitant]
     Active Substance: ERGOCALCIFEROL
     Dosage: 50000 INTERNATIONAL UNIT
     Route: 048
     Dates: start: 20190521, end: 20191205
  23. ERGOCALCIFEROL [Concomitant]
     Active Substance: ERGOCALCIFEROL
     Dosage: 50000 INTERNATIONAL UNIT
     Route: 048
     Dates: start: 20191206, end: 20200527
  24. ERGOCALCIFEROL [Concomitant]
     Active Substance: ERGOCALCIFEROL
     Dosage: 50000 INTERNATIONAL UNIT
     Route: 048
     Dates: start: 20200528, end: 20210311
  25. ERGOCALCIFEROL [Concomitant]
     Active Substance: ERGOCALCIFEROL
     Dosage: 50000 INTERNATIONAL UNIT, BID
     Route: 048
     Dates: start: 20180524, end: 20181010
  26. ERGOCALCIFEROL [Concomitant]
     Active Substance: ERGOCALCIFEROL
     Dosage: 50000 INTERNATIONAL UNIT, TID
     Route: 048
     Dates: start: 20210312
  27. SODIUM CHLORIDE [Concomitant]
     Active Substance: SODIUM CHLORIDE
     Indication: Dehydration
     Dosage: 1000 MILLILITER
     Route: 042
     Dates: start: 20210211
  28. REMERON [Concomitant]
     Active Substance: MIRTAZAPINE
     Indication: Depression
     Dosage: 7.50 MILLIGRAM, QD
     Route: 048
     Dates: start: 20210310, end: 202110
  29. NYSTATIN [Concomitant]
     Active Substance: NYSTATIN
     Indication: Skin infection
     Dosage: 100000 INTERNATIONAL UNIT, BID
     Route: 061
     Dates: start: 20121121
  30. FERROUS SULFATE [Concomitant]
     Active Substance: FERROUS SULFATE
     Indication: Iron deficiency anaemia
     Dosage: 1 DOSAGE FORM
     Route: 048
     Dates: start: 20130616
  31. CALCIUM CARBONATE [Concomitant]
     Active Substance: CALCIUM CARBONATE
     Indication: Dyspepsia
     Dosage: 1 DOSAGE FORM
     Route: 048
     Dates: start: 20130116
  32. LOPERAMIDE [Concomitant]
     Active Substance: LOPERAMIDE
     Indication: Diarrhoea
     Dosage: 2 DOSAGE FORM, QID
     Route: 048
     Dates: start: 2014, end: 20201202
  33. MORPHINE [Concomitant]
     Active Substance: MORPHINE
     Indication: Diarrhoea
     Dosage: 1 MILLILITER, QID
     Dates: start: 201306
  34. MORPHINE [Concomitant]
     Active Substance: MORPHINE
     Indication: Abdominal pain
  35. HYDROCHLOROTHIAZIDE [Concomitant]
     Active Substance: HYDROCHLOROTHIAZIDE
     Indication: Hypertension
     Dosage: 25 MILLIGRAM, QD
     Route: 048
     Dates: start: 2013, end: 20190511
  36. HYDROCHLOROTHIAZIDE [Concomitant]
     Active Substance: HYDROCHLOROTHIAZIDE
     Indication: Pulmonary oedema
     Dosage: 50 MILLIGRAM, QD
     Route: 048
     Dates: start: 20190512
  37. ABACAVIR SULFATE\DOLUTEGRAVIR SODIUM\LAMIVUDINE [Concomitant]
     Active Substance: ABACAVIR SULFATE\DOLUTEGRAVIR SODIUM\LAMIVUDINE
     Indication: HIV infection
     Dosage: 1 DOSAGE FORM, QD
     Route: 048
     Dates: start: 201503
  38. CHOLECALCIFEROL [Concomitant]
     Active Substance: CHOLECALCIFEROL
     Indication: Vitamin D deficiency
     Dosage: 55000 INTERNATIONAL UNIT, QD
     Route: 048
     Dates: start: 2014, end: 20181010
  39. OMBITASVIR\PARITAPREVIR\RITONAVIR [Concomitant]
     Active Substance: OMBITASVIR\PARITAPREVIR\RITONAVIR
     Indication: Hepatitis C
     Dosage: 4 DOSAGE FORM, QD
     Route: 048
     Dates: start: 20150608, end: 201509
  40. ESTRADIOL [Concomitant]
     Active Substance: ESTRADIOL
     Indication: Menopausal symptoms
     Dosage: 1 GRAM
     Route: 067
     Dates: start: 201609
  41. LOACTIN [Concomitant]
     Indication: Diarrhoea
     Dosage: 5 MILLIGRAM, QID
     Route: 048
     Dates: start: 20160218
  42. IBUPROFEN [Concomitant]
     Active Substance: IBUPROFEN
     Indication: Tooth disorder
     Dosage: 800 MILLIGRAM
     Route: 048
     Dates: start: 20180408, end: 20180418
  43. AMLODIPINE [Concomitant]
     Active Substance: AMLODIPINE BESYLATE
     Indication: Hypertension
     Dosage: 5 MILLIGRAM, QD
     Route: 048
     Dates: start: 20171121, end: 20210512
  44. AMLODIPINE [Concomitant]
     Active Substance: AMLODIPINE BESYLATE
     Indication: Pulmonary oedema
     Dosage: 10 MILLIGRAM, QD
     Route: 048
     Dates: start: 20190512
  45. ATROPINE\DIPHENOXYLATE [Concomitant]
     Active Substance: ATROPINE\DIPHENOXYLATE
     Indication: Diarrhoea
     Dosage: 2.50 MILLIGRAM, QID
     Route: 048
     Dates: start: 20180612, end: 20181010
  46. FLAGYL [Concomitant]
     Active Substance: METRONIDAZOLE\METRONIDAZOLE HYDROCHLORIDE
     Indication: Vulvovaginitis trichomonal
     Dosage: 500 MILLIGRAM, BID
     Route: 048
     Dates: start: 20180801, end: 20180807
  47. FLAGYL [Concomitant]
     Active Substance: METRONIDAZOLE\METRONIDAZOLE HYDROCHLORIDE
     Dosage: 500 MILLIGRAM, BID
     Route: 048
     Dates: start: 20180823, end: 20180906
  48. FLAGYL [Concomitant]
     Active Substance: METRONIDAZOLE\METRONIDAZOLE HYDROCHLORIDE
     Dosage: 2000 MILLIGRAM, QD
     Route: 048
     Dates: start: 20180913, end: 20180913
  49. FLAGYL [Concomitant]
     Active Substance: METRONIDAZOLE\METRONIDAZOLE HYDROCHLORIDE
     Dosage: 2 GRAM, QD
     Route: 048
     Dates: start: 20180918, end: 20180925
  50. TINIDAZOL [Concomitant]
     Indication: Vulvovaginitis trichomonal
     Dosage: 20000 MILLIGRAM, QD
     Route: 048
     Dates: start: 20180927, end: 20181004
  51. TINIDAZOL [Concomitant]
     Dosage: 500 MILLIGRAM, QID
     Route: 048
     Dates: start: 20180927, end: 20181017
  52. FLUCONAZOLE [Concomitant]
     Active Substance: FLUCONAZOLE
     Indication: Genital candidiasis
     Dosage: 150 MILLIGRAM
     Route: 048
     Dates: start: 20181010, end: 20181013
  53. LOSARTAN [Concomitant]
     Active Substance: LOSARTAN
     Indication: Hypertension
     Dosage: 50 MILLIGRAM, QD
     Route: 048
     Dates: start: 20190511
  54. LOSARTAN [Concomitant]
     Active Substance: LOSARTAN
     Indication: Pulmonary oedema
  55. POTASSIUM CHLORIDE [Concomitant]
     Active Substance: POTASSIUM CHLORIDE
     Indication: Malnutrition
     Dosage: UNK, QD
     Route: 048
     Dates: start: 201905, end: 20200527
  56. POTASSIUM CHLORIDE [Concomitant]
     Active Substance: POTASSIUM CHLORIDE
     Dosage: UNK, QD
     Route: 048
     Dates: start: 20200528, end: 20210211
  57. POTASSIUM CHLORIDE [Concomitant]
     Active Substance: POTASSIUM CHLORIDE
     Dosage: UNK, QD
     Route: 048
     Dates: start: 20210211
  58. DIMETHICONE [Concomitant]
     Active Substance: DIMETHICONE
     Indication: Abdominal distension
     Dosage: 500 MILLIGRAM
     Route: 048
     Dates: start: 20201111
  59. ONDANSETRON [Concomitant]
     Active Substance: ONDANSETRON
     Indication: Nausea
     Dosage: 4 MILLIGRAM
     Route: 048
     Dates: start: 20201111
  60. LOMOTIL [Concomitant]
     Active Substance: ATROPINE SULFATE\DIPHENOXYLATE HYDROCHLORIDE
     Indication: Diarrhoea
     Dosage: 5 MILLIGRAM, QID
     Route: 048
     Dates: start: 20160218
  61. VEETIDS [Concomitant]
     Active Substance: PENICILLIN V POTASSIUM
     Indication: Tooth disorder
     Dosage: 500 MILLIGRAM, BID
     Route: 048
     Dates: start: 20180408, end: 20180418

REACTIONS (1)
  - Large intestine polyp [Recovered/Resolved]

NARRATIVE: CASE EVENT DATE: 20211006
